FAERS Safety Report 19591760 (Version 6)
Quarter: 2022Q2

REPORT INFORMATION
  Report Type: Spontaneous
  Country: CA (occurrence: CA)
  Receive Date: 20210721
  Receipt Date: 20220405
  Transmission Date: 20220721
  Serious: Yes (Death, Other)
  Sender: FDA-Public Use
  Company Number: CA-BOEHRINGERINGELHEIM-2021-BI-116144

PATIENT
  Age: 80 Year
  Sex: Male
  Weight: 69 kg

DRUGS (332)
  1. DULCOLAX NOS [Suspect]
     Active Substance: BISACODYL OR DOCUSATE SODIUM
     Indication: Constipation
     Route: 054
  2. DULCOLAX NOS [Suspect]
     Active Substance: BISACODYL OR DOCUSATE SODIUM
     Indication: Ventricular fibrillation
  3. DULCOLAX NOS [Suspect]
     Active Substance: BISACODYL OR DOCUSATE SODIUM
     Indication: Drug therapy
  4. DULCOLAX NOS [Suspect]
     Active Substance: BISACODYL OR DOCUSATE SODIUM
     Route: 054
  5. DULCOLAX NOS [Suspect]
     Active Substance: BISACODYL OR DOCUSATE SODIUM
     Route: 054
  6. ATROVENT [Suspect]
     Active Substance: IPRATROPIUM BROMIDE
     Indication: Sleep disorder therapy
     Route: 055
  7. ATROVENT [Suspect]
     Active Substance: IPRATROPIUM BROMIDE
     Indication: Dyspnoea
     Dosage: 1 DOSAGE FORM
  8. ATROVENT [Suspect]
     Active Substance: IPRATROPIUM BROMIDE
  9. ATROVENT [Suspect]
     Active Substance: IPRATROPIUM BROMIDE
     Route: 050
  10. ATROVENT [Suspect]
     Active Substance: IPRATROPIUM BROMIDE
  11. ATROVENT [Suspect]
     Active Substance: IPRATROPIUM BROMIDE
     Route: 050
  12. ATROVENT [Suspect]
     Active Substance: IPRATROPIUM BROMIDE
  13. ATROVENT [Suspect]
     Active Substance: IPRATROPIUM BROMIDE
  14. ATROVENT [Suspect]
     Active Substance: IPRATROPIUM BROMIDE
     Route: 050
  15. ATROVENT [Suspect]
     Active Substance: IPRATROPIUM BROMIDE
     Route: 055
  16. ATROVENT [Suspect]
     Active Substance: IPRATROPIUM BROMIDE
     Route: 055
  17. ATROVENT [Suspect]
     Active Substance: IPRATROPIUM BROMIDE
     Route: 050
  18. ATROVENT [Suspect]
     Active Substance: IPRATROPIUM BROMIDE
     Route: 050
  19. ATROVENT [Suspect]
     Active Substance: IPRATROPIUM BROMIDE
     Route: 055
  20. ACETAMINOPHEN [Suspect]
     Active Substance: ACETAMINOPHEN
     Indication: Analgesic therapy
     Route: 048
  21. ACETAMINOPHEN [Suspect]
     Active Substance: ACETAMINOPHEN
     Route: 048
  22. ACETAMINOPHEN [Suspect]
     Active Substance: ACETAMINOPHEN
     Route: 048
  23. ALLOPURINOL [Suspect]
     Active Substance: ALLOPURINOL
     Indication: Blood uric acid increased
     Route: 048
  24. ALLOPURINOL [Suspect]
     Active Substance: ALLOPURINOL
     Dosage: 1 DOSAGE FORM
     Route: 048
  25. ALLOPURINOL [Suspect]
     Active Substance: ALLOPURINOL
     Dosage: 1 DOSAGE FORM
     Route: 048
  26. ALLOPURINOL [Suspect]
     Active Substance: ALLOPURINOL
     Dosage: 1 DOAGE FORM
     Route: 048
  27. ALLOPURINOL [Suspect]
     Active Substance: ALLOPURINOL
     Dosage: 1 DOSAGE FORM
     Route: 048
  28. ALLOPURINOL [Suspect]
     Active Substance: ALLOPURINOL
     Route: 048
  29. ALLOPURINOL [Suspect]
     Active Substance: ALLOPURINOL
     Route: 048
  30. AMIODARONE HYDROCHLORIDE [Suspect]
     Active Substance: AMIODARONE HYDROCHLORIDE
     Indication: Ventricular fibrillation
     Dosage: LIQUIDIN TRAVENOUS
     Route: 042
  31. AMIODARONE HYDROCHLORIDE [Suspect]
     Active Substance: AMIODARONE HYDROCHLORIDE
     Indication: Drug therapy
  32. AMIODARONE HYDROCHLORIDE [Suspect]
     Active Substance: AMIODARONE HYDROCHLORIDE
  33. AMIODARONE HYDROCHLORIDE [Suspect]
     Active Substance: AMIODARONE HYDROCHLORIDE
  34. AMIODARONE HYDROCHLORIDE [Suspect]
     Active Substance: AMIODARONE HYDROCHLORIDE
     Route: 042
  35. AMIODARONE HYDROCHLORIDE [Suspect]
     Active Substance: AMIODARONE HYDROCHLORIDE
     Route: 042
  36. AMIODARONE HYDROCHLORIDE [Suspect]
     Active Substance: AMIODARONE HYDROCHLORIDE
     Route: 042
  37. ARANESP [Suspect]
     Active Substance: DARBEPOETIN ALFA
     Indication: Anaemia
     Dosage: SOLUTION INTRAVENOUS
     Route: 042
  38. ARANESP [Suspect]
     Active Substance: DARBEPOETIN ALFA
     Dosage: POWDER FOR ORAL SOLUTION
     Route: 042
  39. ARANESP [Suspect]
     Active Substance: DARBEPOETIN ALFA
     Dosage: POWDER FOR ORAL SOLUTION
     Route: 042
  40. ARANESP [Suspect]
     Active Substance: DARBEPOETIN ALFA
     Dosage: POWDER FOR ORAL SOLUTION
     Route: 042
  41. BETAMETHASONE [Suspect]
     Active Substance: BETAMETHASONE
     Indication: Swelling
     Route: 061
  42. BETAMETHASONE [Suspect]
     Active Substance: BETAMETHASONE
  43. BETAMETHASONE [Suspect]
     Active Substance: BETAMETHASONE
  44. BETAMETHASONE [Suspect]
     Active Substance: BETAMETHASONE
  45. BETAMETHASONE [Suspect]
     Active Substance: BETAMETHASONE
     Route: 061
  46. BETAMETHASONE [Suspect]
     Active Substance: BETAMETHASONE
     Route: 061
  47. CALCITRIOL [Suspect]
     Active Substance: CALCITRIOL
     Indication: Vitamin D
     Route: 048
  48. CALCITRIOL [Suspect]
     Active Substance: CALCITRIOL
  49. CALCITRIOL [Suspect]
     Active Substance: CALCITRIOL
  50. CALCITRIOL [Suspect]
     Active Substance: CALCITRIOL
  51. CEFTRIAXONE SODIUM [Suspect]
     Active Substance: CEFTRIAXONE SODIUM
     Indication: Bacterial infection
     Dosage: POWDER FOR SOLUTION INTRAMUSCULAR
     Route: 042
  52. CEFTRIAXONE SODIUM [Suspect]
     Active Substance: CEFTRIAXONE SODIUM
     Route: 042
  53. CEFTRIAXONE SODIUM [Suspect]
     Active Substance: CEFTRIAXONE SODIUM
  54. DOBUTAMINE [Suspect]
     Active Substance: DOBUTAMINE HYDROCHLORIDE
     Indication: Cardiogenic shock
     Dosage: LIQUID INTRAVENOUS
     Route: 042
  55. DOBUTAMINE [Suspect]
     Active Substance: DOBUTAMINE HYDROCHLORIDE
  56. DOBUTAMINE [Suspect]
     Active Substance: DOBUTAMINE HYDROCHLORIDE
     Route: 042
  57. DOBUTAMINE [Suspect]
     Active Substance: DOBUTAMINE HYDROCHLORIDE
     Route: 042
  58. DOBUTAMINE [Suspect]
     Active Substance: DOBUTAMINE HYDROCHLORIDE
  59. FLUTICASONE FUROATE\VILANTEROL TRIFENATATE [Suspect]
     Active Substance: FLUTICASONE FUROATE\VILANTEROL TRIFENATATE
     Indication: Product used for unknown indication
     Route: 055
  60. FLUTICASONE FUROATE\VILANTEROL TRIFENATATE [Suspect]
     Active Substance: FLUTICASONE FUROATE\VILANTEROL TRIFENATATE
  61. FERRLECIT [Suspect]
     Active Substance: SODIUM FERRIC GLUCONATE COMPLEX
     Indication: Iron deficiency
     Dosage: LIQUID INTRAVENOUS
     Route: 042
  62. FERRLECIT [Suspect]
     Active Substance: SODIUM FERRIC GLUCONATE COMPLEX
     Route: 042
  63. INSULIN ASPART [Suspect]
     Active Substance: INSULIN ASPART
     Indication: Diabetes mellitus
     Route: 058
  64. FOSRENOL [Suspect]
     Active Substance: LANTHANUM CARBONATE
     Indication: Blood phosphorus increased
     Route: 048
  65. FRAGMIN [Suspect]
     Active Substance: DALTEPARIN SODIUM
     Indication: Pulmonary embolism
     Dosage: SOLUTION INTRAVENOUS
  66. GABAPENTIN [Suspect]
     Active Substance: GABAPENTIN
     Indication: Neuralgia
     Route: 048
  67. GABAPENTIN [Suspect]
     Active Substance: GABAPENTIN
  68. GABAPENTIN [Suspect]
     Active Substance: GABAPENTIN
  69. GABAPENTIN [Suspect]
     Active Substance: GABAPENTIN
  70. GABAPENTIN [Suspect]
     Active Substance: GABAPENTIN
     Route: 048
  71. DEXTROSE [Suspect]
     Active Substance: DEXTROSE
     Indication: Nutritional supplementation
     Route: 042
  72. HEPARIN SODIUM [Suspect]
     Active Substance: HEPARIN SODIUM
     Indication: Anticoagulant therapy
     Dosage: SOLUTION INTRAVENOUS
     Route: 042
  73. HEPARIN SODIUM [Suspect]
     Active Substance: HEPARIN SODIUM
     Dosage: SOLUTION INTRAVENOUS
     Route: 042
  74. HEPARIN SODIUM [Suspect]
     Active Substance: HEPARIN SODIUM
     Route: 042
  75. HEPARIN SODIUM [Suspect]
     Active Substance: HEPARIN SODIUM
  76. HEPARIN SODIUM [Suspect]
     Active Substance: HEPARIN SODIUM
     Route: 042
  77. HEPARIN SODIUM [Suspect]
     Active Substance: HEPARIN SODIUM
     Dosage: SOLUTIONINTRAVENOU
     Route: 042
  78. HYDROMORPHONE [Suspect]
     Active Substance: HYDROMORPHONE
     Indication: Analgesic therapy
     Route: 058
  79. HYDROMORPHONE [Suspect]
     Active Substance: HYDROMORPHONE
     Route: 058
  80. LANSOPRAZOLE [Suspect]
     Active Substance: LANSOPRAZOLE
     Indication: Antacid therapy
     Route: 048
  81. LANSOPRAZOLE [Suspect]
     Active Substance: LANSOPRAZOLE
  82. LANSOPRAZOLE [Suspect]
     Active Substance: LANSOPRAZOLE
     Dosage: DELAYED RELEASE CAPSULE
     Route: 048
  83. LANSOPRAZOLE [Suspect]
     Active Substance: LANSOPRAZOLE
     Route: 048
  84. LANSOPRAZOLE [Suspect]
     Active Substance: LANSOPRAZOLE
     Route: 048
  85. LANSOPRAZOLE [Suspect]
     Active Substance: LANSOPRAZOLE
     Route: 048
  86. LANSOPRAZOLE [Suspect]
     Active Substance: LANSOPRAZOLE
     Route: 048
  87. MELATONIN [Suspect]
     Active Substance: MELATONIN
     Indication: Sleep disorder therapy
     Route: 048
  88. MELATONIN [Suspect]
     Active Substance: MELATONIN
     Route: 048
  89. MELATONIN [Suspect]
     Active Substance: MELATONIN
  90. MELATONIN [Suspect]
     Active Substance: MELATONIN
     Route: 048
  91. METRONIDAZOLE [Suspect]
     Active Substance: METRONIDAZOLE
     Indication: Bacterial infection
     Route: 048
  92. METRONIDAZOLE [Suspect]
     Active Substance: METRONIDAZOLE
  93. METRONIDAZOLE [Suspect]
     Active Substance: METRONIDAZOLE
     Route: 048
  94. METRONIDAZOLE [Suspect]
     Active Substance: METRONIDAZOLE
     Route: 048
  95. NOREPINEPHRINE [Suspect]
     Active Substance: NOREPINEPHRINE
     Indication: Stress
     Route: 042
  96. NOREPINEPHRINE [Suspect]
     Active Substance: NOREPINEPHRINE
     Route: 065
  97. NOREPINEPHRINE [Suspect]
     Active Substance: NOREPINEPHRINE
  98. NOREPINEPHRINE [Suspect]
     Active Substance: NOREPINEPHRINE
  99. NOREPINEPHRINE [Suspect]
     Active Substance: NOREPINEPHRINE
  100. NOREPINEPHRINE [Suspect]
     Active Substance: NOREPINEPHRINE
  101. NOREPINEPHRINE [Suspect]
     Active Substance: NOREPINEPHRINE
     Route: 042
  102. ONDANSETRON [Suspect]
     Active Substance: ONDANSETRON
     Indication: Nausea
     Route: 042
  103. ONDANSETRON [Suspect]
     Active Substance: ONDANSETRON
     Indication: Vomiting
     Route: 042
  104. ONDANSETRON [Suspect]
     Active Substance: ONDANSETRON
     Route: 042
  105. ONDANSETRON [Suspect]
     Active Substance: ONDANSETRON
     Route: 042
  106. ONDANSETRON [Suspect]
     Active Substance: ONDANSETRON
     Route: 042
  107. ONDANSETRON [Suspect]
     Active Substance: ONDANSETRON
     Route: 042
  108. ONDANSETRON [Suspect]
     Active Substance: ONDANSETRON
  109. ONDANSETRON [Suspect]
     Active Substance: ONDANSETRON
     Dosage: 1 DOSAGE FORM
  110. ONDANSETRON [Suspect]
     Active Substance: ONDANSETRON
     Route: 042
  111. ONDANSETRON [Suspect]
     Active Substance: ONDANSETRON
     Route: 042
  112. ONDANSETRON [Suspect]
     Active Substance: ONDANSETRON
     Route: 042
  113. PHYTONADIONE [Suspect]
     Active Substance: PHYTONADIONE
     Indication: Vitamin supplementation
     Route: 042
  114. PHYTONADIONE [Suspect]
     Active Substance: PHYTONADIONE
     Route: 042
  115. POLYETHYLENE GLYCOL 4000 [Suspect]
     Active Substance: POLYETHYLENE GLYCOL 4000
     Indication: Constipation
     Route: 048
  116. POLYETHYLENE GLYCOL 4000 [Suspect]
     Active Substance: POLYETHYLENE GLYCOL 4000
     Route: 048
  117. POLYETHYLENE GLYCOL 4000 [Suspect]
     Active Substance: POLYETHYLENE GLYCOL 4000
     Route: 048
  118. POLYETHYLENE GLYCOL 4000 [Suspect]
     Active Substance: POLYETHYLENE GLYCOL 4000
     Route: 048
  119. PYRIDOXINE HYDROCHLORIDE [Suspect]
     Active Substance: PYRIDOXINE HYDROCHLORIDE
     Indication: Vitamin supplementation
     Route: 048
  120. PYRIDOXINE HYDROCHLORIDE [Suspect]
     Active Substance: PYRIDOXINE HYDROCHLORIDE
  121. PYRIDOXINE HYDROCHLORIDE [Suspect]
     Active Substance: PYRIDOXINE HYDROCHLORIDE
  122. PYRIDOXINE HYDROCHLORIDE [Suspect]
     Active Substance: PYRIDOXINE HYDROCHLORIDE
     Route: 048
  123. PYRIDOXINE HYDROCHLORIDE [Suspect]
     Active Substance: PYRIDOXINE HYDROCHLORIDE
     Route: 048
  124. PYRIDOXINE HYDROCHLORIDE [Suspect]
     Active Substance: PYRIDOXINE HYDROCHLORIDE
     Route: 048
  125. PYRIDOXINE HYDROCHLORIDE [Suspect]
     Active Substance: PYRIDOXINE HYDROCHLORIDE
     Route: 048
  126. ALBUTEROL [Suspect]
     Active Substance: ALBUTEROL
     Indication: Chronic obstructive pulmonary disease
     Dosage: 1.0 DOSAGEFORMS; 4 EVERY 1 DAYS?INTRANASAL
     Route: 055
  127. ALBUTEROL [Suspect]
     Active Substance: ALBUTEROL
     Route: 055
  128. ALBUTEROL [Suspect]
     Active Substance: ALBUTEROL
     Dosage: 4.0 DOSAGE FORMS
     Route: 055
  129. ALBUTEROL [Suspect]
     Active Substance: ALBUTEROL
     Dosage: 4 DOSAGE FORM
     Route: 055
  130. ALBUTEROL [Suspect]
     Active Substance: ALBUTEROL
  131. ALBUTEROL [Suspect]
     Active Substance: ALBUTEROL
     Route: 050
  132. ALBUTEROL [Suspect]
     Active Substance: ALBUTEROL
     Dosage: 1 DOSAGE FORM
     Route: 055
  133. ALBUTEROL [Suspect]
     Active Substance: ALBUTEROL
     Dosage: 4 DOSAGE FORM
     Route: 055
  134. ALBUTEROL [Suspect]
     Active Substance: ALBUTEROL
     Route: 055
  135. ALBUTEROL [Suspect]
     Active Substance: ALBUTEROL
  136. ALBUTEROL [Suspect]
     Active Substance: ALBUTEROL
     Route: 050
  137. ALBUTEROL [Suspect]
     Active Substance: ALBUTEROL
     Dosage: 1 DOSAGE FORM
  138. SIMVASTATIN [Suspect]
     Active Substance: SIMVASTATIN
     Indication: Blood cholesterol increased
     Route: 048
  139. SIMVASTATIN [Suspect]
     Active Substance: SIMVASTATIN
     Route: 048
  140. SIMVASTATIN [Suspect]
     Active Substance: SIMVASTATIN
  141. SIMVASTATIN [Suspect]
     Active Substance: SIMVASTATIN
  142. SIMVASTATIN [Suspect]
     Active Substance: SIMVASTATIN
  143. ANTICOAGULANT SODIUM CITRATE NOS [Suspect]
     Active Substance: SODIUM CITRATE
     Indication: Thrombosis
     Route: 065
  144. SODIUM PHOSPHATE [Suspect]
     Active Substance: SODIUM PHOSPHATE
     Indication: Constipation
     Dosage: SOLUTION
     Route: 054
  145. TRESIBA [Suspect]
     Active Substance: INSULIN DEGLUDEC
     Indication: Diabetes mellitus
     Route: 058
  146. TRESIBA [Suspect]
     Active Substance: INSULIN DEGLUDEC
     Route: 065
  147. UMECLIDINIUM BROMIDE [Suspect]
     Active Substance: UMECLIDINIUM BROMIDE
     Indication: Dyspnoea
     Route: 048
  148. UMECLIDINIUM BROMIDE [Suspect]
     Active Substance: UMECLIDINIUM BROMIDE
  149. VASOPRESSIN [Suspect]
     Active Substance: VASOPRESSIN
     Indication: Drug therapy
     Route: 042
  150. VASOPRESSIN [Suspect]
     Active Substance: VASOPRESSIN
  151. VASOPRESSIN [Suspect]
     Active Substance: VASOPRESSIN
     Route: 042
  152. VASOPRESSIN [Suspect]
     Active Substance: VASOPRESSIN
     Route: 042
  153. WARFARIN SODIUM [Suspect]
     Active Substance: WARFARIN SODIUM
     Indication: Thrombosis
     Route: 048
  154. WARFARIN SODIUM [Suspect]
     Active Substance: WARFARIN SODIUM
     Route: 048
  155. WARFARIN SODIUM [Suspect]
     Active Substance: WARFARIN SODIUM
  156. WARFARIN SODIUM [Suspect]
     Active Substance: WARFARIN SODIUM
     Route: 048
  157. DIPYRONE [Suspect]
     Active Substance: DIPYRONE
     Indication: Vitamin supplementation
     Route: 042
  158. DIPYRONE [Suspect]
     Active Substance: DIPYRONE
     Route: 042
  159. DIPYRONE [Suspect]
     Active Substance: DIPYRONE
  160. DIPYRONE [Suspect]
     Active Substance: DIPYRONE
     Route: 042
  161. DISTIGMINE BROMIDE [Suspect]
     Active Substance: DISTIGMINE BROMIDE
     Indication: Dyspnoea
     Route: 048
  162. DISTIGMINE BROMIDE [Suspect]
     Active Substance: DISTIGMINE BROMIDE
     Route: 048
  163. DISTIGMINE BROMIDE [Suspect]
     Active Substance: DISTIGMINE BROMIDE
     Route: 048
  164. DISTIGMINE BROMIDE [Suspect]
     Active Substance: DISTIGMINE BROMIDE
     Route: 048
  165. HERBALS\PAULLINIA CUPANA SEED [Suspect]
     Active Substance: HERBALS\PAULLINIA CUPANA SEED
     Indication: Nutritional supplementation
     Route: 042
  166. HERBALS\PAULLINIA CUPANA SEED [Suspect]
     Active Substance: HERBALS\PAULLINIA CUPANA SEED
     Route: 042
  167. VILANTEROL TRIFENATATE [Suspect]
     Active Substance: VILANTEROL TRIFENATATE
     Indication: Product used for unknown indication
     Route: 065
  168. VILANTEROL TRIFENATATE [Suspect]
     Active Substance: VILANTEROL TRIFENATATE
  169. VILANTEROL TRIFENATATE [Suspect]
     Active Substance: VILANTEROL TRIFENATATE
  170. VILANTEROL TRIFENATATE [Suspect]
     Active Substance: VILANTEROL TRIFENATATE
  171. VILANTEROL TRIFENATATE [Suspect]
     Active Substance: VILANTEROL TRIFENATATE
  172. SODIUM FERRIC GLUCONATE COMPLEX [Suspect]
     Active Substance: SODIUM FERRIC GLUCONATE COMPLEX
     Indication: Iron deficiency
     Route: 042
  173. SODIUM FERRIC GLUCONATE COMPLEX [Suspect]
     Active Substance: SODIUM FERRIC GLUCONATE COMPLEX
     Route: 042
  174. POLYETHYLENE GLYCOL 4000 [Suspect]
     Active Substance: POLYETHYLENE GLYCOL 4000
     Indication: Constipation
     Route: 048
  175. SODIUM FERRIC GLUCONATE COMPLEX [Suspect]
     Active Substance: SODIUM FERRIC GLUCONATE COMPLEX
     Indication: Iron deficiency
     Route: 042
  176. SODIUM FERRIC GLUCONATE COMPLEX [Suspect]
     Active Substance: SODIUM FERRIC GLUCONATE COMPLEX
     Route: 042
  177. DEXTROSE [Suspect]
     Active Substance: DEXTROSE
     Indication: Nutritional supplementation
     Route: 042
  178. DEXTROSE [Suspect]
     Active Substance: DEXTROSE
     Route: 042
  179. DEXTROSE [Suspect]
     Active Substance: DEXTROSE
  180. DEXTROSE [Suspect]
     Active Substance: DEXTROSE
  181. DEXTROSE [Suspect]
     Active Substance: DEXTROSE
     Route: 042
  182. DEXTROSE [Suspect]
     Active Substance: DEXTROSE
     Route: 042
  183. INSULIN ASPART [Suspect]
     Active Substance: INSULIN ASPART
     Indication: Diabetes mellitus
     Route: 058
  184. INSULIN ASPART [Suspect]
     Active Substance: INSULIN ASPART
     Route: 058
  185. INSULIN ASPART [Suspect]
     Active Substance: INSULIN ASPART
     Route: 058
  186. INSULIN ASPART [Suspect]
     Active Substance: INSULIN ASPART
  187. INSULIN ASPART [Suspect]
     Active Substance: INSULIN ASPART
  188. INSULIN ASPART [Suspect]
     Active Substance: INSULIN ASPART
  189. INSULIN ASPART [Suspect]
     Active Substance: INSULIN ASPART
  190. INSULIN DEGLUDEC [Suspect]
     Active Substance: INSULIN DEGLUDEC
     Indication: Diabetes mellitus
     Route: 058
  191. INSULIN DEGLUDEC [Suspect]
     Active Substance: INSULIN DEGLUDEC
  192. INSULIN DEGLUDEC [Suspect]
     Active Substance: INSULIN DEGLUDEC
     Route: 058
  193. INSULIN DEGLUDEC [Suspect]
     Active Substance: INSULIN DEGLUDEC
     Route: 058
  194. IPRATROPIUM [Suspect]
     Active Substance: IPRATROPIUM
     Indication: Dyspnoea
     Dosage: 1 DOSAGE FORM, INTRA-NASAL?INTRANASAL
     Route: 045
  195. LANTHANUM CARBONATE [Suspect]
     Active Substance: LANTHANUM CARBONATE
     Indication: Blood phosphorus increased
     Route: 048
  196. LANTHANUM CARBONATE [Suspect]
     Active Substance: LANTHANUM CARBONATE
     Route: 048
  197. LANTHANUM CARBONATE [Suspect]
     Active Substance: LANTHANUM CARBONATE
  198. LANTHANUM CARBONATE [Suspect]
     Active Substance: LANTHANUM CARBONATE
     Route: 048
  199. LANTHANUM CARBONATE [Suspect]
     Active Substance: LANTHANUM CARBONATE
     Route: 048
  200. LANTHANUM CARBONATE [Suspect]
     Active Substance: LANTHANUM CARBONATE
  201. POLYETHYLENE GLYCOL 3350 [Suspect]
     Active Substance: POLYETHYLENE GLYCOL 3350
     Indication: Constipation
     Route: 048
  202. POLYETHYLENE GLYCOL 3350 [Suspect]
     Active Substance: POLYETHYLENE GLYCOL 3350
     Route: 048
  203. OSELTAMIVIR PHOSPHATE [Suspect]
     Active Substance: OSELTAMIVIR PHOSPHATE
     Indication: Product used for unknown indication
     Route: 054
  204. OSELTAMIVIR PHOSPHATE [Suspect]
     Active Substance: OSELTAMIVIR PHOSPHATE
  205. SODIUM PHOSPHATE, MONOBASIC [Suspect]
     Active Substance: SODIUM PHOSPHATE, MONOBASIC
     Indication: Constipation
     Route: 054
  206. SODIUM PHOSPHATE, MONOBASIC [Suspect]
     Active Substance: SODIUM PHOSPHATE, MONOBASIC
  207. SODIUM PHOSPHATE, MONOBASIC [Suspect]
     Active Substance: SODIUM PHOSPHATE, MONOBASIC
  208. SODIUM PICOSULFATE [Suspect]
     Active Substance: SODIUM PICOSULFATE
     Indication: Constipation
     Route: 054
  209. SODIUM PICOSULFATE [Suspect]
     Active Substance: SODIUM PICOSULFATE
     Indication: Analgesic therapy
  210. SODIUM PICOSULFATE [Suspect]
     Active Substance: SODIUM PICOSULFATE
  211. SODIUM PICOSULFATE [Suspect]
     Active Substance: SODIUM PICOSULFATE
     Route: 054
  212. SODIUM PICOSULFATE [Suspect]
     Active Substance: SODIUM PICOSULFATE
     Route: 054
  213. SODIUM PICOSULFATE [Suspect]
     Active Substance: SODIUM PICOSULFATE
  214. DALTEPARIN SODIUM [Suspect]
     Active Substance: DALTEPARIN SODIUM
     Indication: Pulmonary embolism
     Route: 065
  215. DALTEPARIN SODIUM [Suspect]
     Active Substance: DALTEPARIN SODIUM
  216. DALTEPARIN SODIUM [Suspect]
     Active Substance: DALTEPARIN SODIUM
  217. DALTEPARIN SODIUM [Suspect]
     Active Substance: DALTEPARIN SODIUM
  218. DALTEPARIN SODIUM [Suspect]
     Active Substance: DALTEPARIN SODIUM
  219. DALTEPARIN SODIUM [Suspect]
     Active Substance: DALTEPARIN SODIUM
  220. DALTEPARIN SODIUM [Suspect]
     Active Substance: DALTEPARIN SODIUM
  221. CHLORAMPHENICOL\HYDROCORTISONE ACETATE\METRONIDAZOLE\NYSTATIN [Suspect]
     Active Substance: CHLORAMPHENICOL\HYDROCORTISONE ACETATE\METRONIDAZOLE\NYSTATIN
     Indication: Anaemia
  222. CHLORAMPHENICOL\HYDROCORTISONE ACETATE\METRONIDAZOLE\NYSTATIN [Suspect]
     Active Substance: CHLORAMPHENICOL\HYDROCORTISONE ACETATE\METRONIDAZOLE\NYSTATIN
  223. AMIODARONE [Suspect]
     Active Substance: AMIODARONE
     Indication: Ventricular fibrillation
     Route: 042
  224. AMIODARONE [Suspect]
     Active Substance: AMIODARONE
     Indication: Drug therapy
  225. DIETARY SUPPLEMENT [Suspect]
     Active Substance: DIETARY SUPPLEMENT
     Indication: Vitamin supplementation
     Dosage: POWDER
     Route: 042
  226. TRESIBA [Suspect]
     Active Substance: INSULIN DEGLUDEC
     Indication: Diabetes mellitus
     Dosage: 1 DOSAGE FORM
     Route: 058
  227. NOVORAPID [Suspect]
     Active Substance: INSULIN ASPART
     Indication: Diabetes mellitus
     Route: 058
  228. XANTOFYL PALMITATE [Suspect]
     Active Substance: XANTOFYL PALMITATE
     Indication: Nutritional supplementation
  229. WARFARIN [Suspect]
     Active Substance: WARFARIN
     Indication: Thrombosis
     Route: 048
  230. WARFARIN [Suspect]
     Active Substance: WARFARIN
     Route: 048
  231. WARFARIN [Suspect]
     Active Substance: WARFARIN
     Route: 048
  232. WARFARIN [Suspect]
     Active Substance: WARFARIN
     Route: 048
  233. WARFARIN [Suspect]
     Active Substance: WARFARIN
     Route: 048
  234. VITAMIN K1 [Suspect]
     Active Substance: PHYTONADIONE
     Indication: Vitamin supplementation
     Route: 017
  235. VITAMIN K1 [Suspect]
     Active Substance: PHYTONADIONE
     Route: 042
  236. VITAMIN E [Suspect]
     Active Substance: .ALPHA.-TOCOPHEROL
     Indication: Nutritional supplementation
     Route: 042
  237. VITAMIN E [Suspect]
     Active Substance: .ALPHA.-TOCOPHEROL
     Route: 042
  238. AMMONIUM CHLORIDE\CHLORPHENIRAMINE\SODIUM CITRATE [Suspect]
     Active Substance: AMMONIUM CHLORIDE\CHLORPHENIRAMINE\SODIUM CITRATE
     Indication: Product used for unknown indication
     Route: 048
  239. ARANESP [Suspect]
     Active Substance: DARBEPOETIN ALFA
     Indication: Product used for unknown indication
     Route: 042
  240. ARANESP [Suspect]
     Active Substance: DARBEPOETIN ALFA
     Indication: Anaemia
     Route: 042
  241. ARANESP [Suspect]
     Active Substance: DARBEPOETIN ALFA
     Route: 042
  242. ARANESP [Suspect]
     Active Substance: DARBEPOETIN ALFA
     Route: 042
  243. ARANESP [Suspect]
     Active Substance: DARBEPOETIN ALFA
  244. ARANESP [Suspect]
     Active Substance: DARBEPOETIN ALFA
     Route: 042
  245. ARANESP [Suspect]
     Active Substance: DARBEPOETIN ALFA
     Route: 042
  246. ARANESP [Suspect]
     Active Substance: DARBEPOETIN ALFA
     Dosage: SOLUTION INTRAVENOUS
     Route: 042
  247. ARANESP [Suspect]
     Active Substance: DARBEPOETIN ALFA
     Route: 042
  248. ARANESP [Suspect]
     Active Substance: DARBEPOETIN ALFA
     Dosage: CYCLIC
     Route: 042
  249. ARANESP [Suspect]
     Active Substance: DARBEPOETIN ALFA
  250. ARANESP [Suspect]
     Active Substance: DARBEPOETIN ALFA
     Route: 042
  251. ARANESP [Suspect]
     Active Substance: DARBEPOETIN ALFA
  252. ARANESP [Suspect]
     Active Substance: DARBEPOETIN ALFA
     Route: 042
  253. ARANESP [Suspect]
     Active Substance: DARBEPOETIN ALFA
     Route: 042
  254. ARANESP [Suspect]
     Active Substance: DARBEPOETIN ALFA
     Route: 042
  255. ARANESP [Suspect]
     Active Substance: DARBEPOETIN ALFA
     Route: 042
  256. ARANESP [Suspect]
     Active Substance: DARBEPOETIN ALFA
     Route: 042
  257. CARBOHYDRATES\FATTY ACIDS\MINERALS\PROTEIN\VITAMINS [Suspect]
     Active Substance: CARBOHYDRATES\FATTY ACIDS\MINERALS\PROTEIN\VITAMINS
     Indication: Vitamin supplementation
     Dosage: INTRACAVERNOU
  258. CARBOHYDRATES\FATTY ACIDS\MINERALS\PROTEIN\VITAMINS [Suspect]
     Active Substance: CARBOHYDRATES\FATTY ACIDS\MINERALS\PROTEIN\VITAMINS
     Dosage: INTRACAVERNOUS
  259. CARBOHYDRATES\FATTY ACIDS\MINERALS\PROTEIN\VITAMINS [Suspect]
     Active Substance: CARBOHYDRATES\FATTY ACIDS\MINERALS\PROTEIN\VITAMINS
  260. CARBOHYDRATES\FATTY ACIDS\MINERALS\PROTEIN\VITAMINS [Suspect]
     Active Substance: CARBOHYDRATES\FATTY ACIDS\MINERALS\PROTEIN\VITAMINS
     Dosage: INTRACAVERNOU
  261. FENOTEROL\IPRATROPIUM [Suspect]
     Active Substance: FENOTEROL\IPRATROPIUM
     Indication: Dyspnoea
     Dosage: 1 DOSAGE FORM
  262. FENOTEROL\IPRATROPIUM [Suspect]
     Active Substance: FENOTEROL\IPRATROPIUM
  263. FENOTEROL\IPRATROPIUM [Suspect]
     Active Substance: FENOTEROL\IPRATROPIUM
  264. FENOTEROL\IPRATROPIUM [Suspect]
     Active Substance: FENOTEROL\IPRATROPIUM
     Dosage: 1 DOSAGE FORM
     Route: 050
  265. FENOTEROL\IPRATROPIUM [Suspect]
     Active Substance: FENOTEROL\IPRATROPIUM
  266. FLUTICASONE FUROATE [Suspect]
     Active Substance: FLUTICASONE FUROATE
     Indication: Nutritional supplementation
  267. FLUTICASONE FUROATE [Suspect]
     Active Substance: FLUTICASONE FUROATE
  268. FLUTICASONE FUROATE [Suspect]
     Active Substance: FLUTICASONE FUROATE
  269. HEPARIN SODIUM [Suspect]
     Active Substance: HEPARIN SODIUM
     Indication: Anticoagulant therapy
     Route: 042
  270. HEPARIN SODIUM [Suspect]
     Active Substance: HEPARIN SODIUM
     Route: 042
  271. HEPARIN SODIUM [Suspect]
     Active Substance: HEPARIN SODIUM
     Route: 042
  272. HEPARIN SODIUM [Suspect]
     Active Substance: HEPARIN SODIUM
  273. HEPARIN SODIUM [Suspect]
     Active Substance: HEPARIN SODIUM
     Route: 042
  274. HEPARIN SODIUM [Suspect]
     Active Substance: HEPARIN SODIUM
     Route: 042
  275. HEPARIN SODIUM [Suspect]
     Active Substance: HEPARIN SODIUM
     Route: 042
  276. HEPARIN SODIUM [Suspect]
     Active Substance: HEPARIN SODIUM
     Route: 042
  277. HYDROMORPHONE HYDROCHLORIDE [Suspect]
     Active Substance: HYDROMORPHONE HYDROCHLORIDE
     Indication: Analgesic therapy
     Route: 058
  278. HYDROMORPHONE HYDROCHLORIDE [Suspect]
     Active Substance: HYDROMORPHONE HYDROCHLORIDE
     Route: 058
  279. HYDROMORPHONE HYDROCHLORIDE [Suspect]
     Active Substance: HYDROMORPHONE HYDROCHLORIDE
     Route: 058
  280. HYDROMORPHONE HYDROCHLORIDE [Suspect]
     Active Substance: HYDROMORPHONE HYDROCHLORIDE
     Route: 058
  281. IPRATROPIUM BROMIDE\XYLOMETAZOLINE HYDROCHLORIDE [Suspect]
     Active Substance: IPRATROPIUM BROMIDE\XYLOMETAZOLINE HYDROCHLORIDE
     Indication: Dyspnoea
     Route: 055
  282. IPRATROPIUM BROMIDE\XYLOMETAZOLINE HYDROCHLORIDE [Suspect]
     Active Substance: IPRATROPIUM BROMIDE\XYLOMETAZOLINE HYDROCHLORIDE
     Dosage: NASAL SPRAY, SOLUTION
     Route: 050
  283. SODIUM PHOSPHATE, MONOBASIC [Suspect]
     Active Substance: SODIUM PHOSPHATE, MONOBASIC
     Indication: Constipation
     Route: 054
  284. SODIUM CITRATE [Suspect]
     Active Substance: SODIUM CITRATE
     Indication: Thrombosis
  285. SODIUM CITRATE [Suspect]
     Active Substance: SODIUM CITRATE
  286. SODIUM CITRATE [Suspect]
     Active Substance: SODIUM CITRATE
  287. SODIUM CITRATE [Suspect]
     Active Substance: SODIUM CITRATE
  288. SODIUM FERRIC GLUCONATE COMPLEX [Suspect]
     Active Substance: SODIUM FERRIC GLUCONATE COMPLEX
     Indication: Iron deficiency
     Route: 042
  289. SODIUM FERRIC GLUCONATE COMPLEX [Suspect]
     Active Substance: SODIUM FERRIC GLUCONATE COMPLEX
     Route: 042
  290. SODIUM FERRIC GLUCONATE COMPLEX [Suspect]
     Active Substance: SODIUM FERRIC GLUCONATE COMPLEX
  291. SODIUM FERRIC GLUCONATE COMPLEX [Suspect]
     Active Substance: SODIUM FERRIC GLUCONATE COMPLEX
     Route: 042
  292. SODIUM FERRIC GLUCONATE COMPLEX [Suspect]
     Active Substance: SODIUM FERRIC GLUCONATE COMPLEX
  293. SODIUM FERRIC GLUCONATE COMPLEX [Suspect]
     Active Substance: SODIUM FERRIC GLUCONATE COMPLEX
  294. SODIUM FERRIC GLUCONATE COMPLEX [Suspect]
     Active Substance: SODIUM FERRIC GLUCONATE COMPLEX
     Route: 042
  295. SODIUM FERRIC GLUCONATE COMPLEX [Suspect]
     Active Substance: SODIUM FERRIC GLUCONATE COMPLEX
     Indication: Iron deficiency
     Route: 042
  296. SODIUM FERRIC GLUCONATE COMPLEX [Suspect]
     Active Substance: SODIUM FERRIC GLUCONATE COMPLEX
     Route: 042
  297. SODIUM FERRIC GLUCONATE COMPLEX [Suspect]
     Active Substance: SODIUM FERRIC GLUCONATE COMPLEX
     Route: 042
  298. SODIUM FERRIC GLUCONATE COMPLEX [Suspect]
     Active Substance: SODIUM FERRIC GLUCONATE COMPLEX
     Route: 042
  299. TRELEGY ELLIPTA [Suspect]
     Active Substance: FLUTICASONE FUROATE\UMECLIDINIUM BROMIDE\VILANTEROL TRIFENATATE
     Indication: Product used for unknown indication
     Dosage: INHALATION POWDER
     Route: 055
  300. ASCORBIC ACID [Suspect]
     Active Substance: ASCORBIC ACID
     Indication: Product used for unknown indication
  301. HORSE CHESTNUT [Suspect]
     Active Substance: HORSE CHESTNUT
     Indication: Product used for unknown indication
  302. SUCROSE [Suspect]
     Active Substance: SUCROSE
     Indication: Iron deficiency
     Dosage: 1 EVERY 4WEEKS
  303. VITAMIN B6 [Suspect]
     Active Substance: PYRIDOXINE HYDROCHLORIDE
     Indication: Vitamin supplementation
     Route: 048
  304. HERBALS\PAULLINIA CUPANA SEED [Suspect]
     Active Substance: HERBALS\PAULLINIA CUPANA SEED
     Indication: Product used for unknown indication
  305. BETA CAROTENE [Concomitant]
     Active Substance: BETA CAROTENE
     Indication: Product used for unknown indication
  306. BETA CAROTENE [Concomitant]
     Active Substance: BETA CAROTENE
     Indication: Nutritional supplementation
  307. VITAMIN C [Concomitant]
     Active Substance: ASCORBIC ACID
     Indication: Product used for unknown indication
  308. VITAMIN C [Concomitant]
     Active Substance: ASCORBIC ACID
     Indication: Vitamin supplementation
  309. VITAMIN C [Concomitant]
     Active Substance: ASCORBIC ACID
  310. VITAMIN C [Concomitant]
     Active Substance: ASCORBIC ACID
     Route: 048
  311. POTASSIUM CHLORIDE [Concomitant]
     Active Substance: POTASSIUM CHLORIDE
     Indication: Product used for unknown indication
     Route: 048
  312. POTASSIUM CHLORIDE [Concomitant]
     Active Substance: POTASSIUM CHLORIDE
  313. POTASSIUM CHLORIDE [Concomitant]
     Active Substance: POTASSIUM CHLORIDE
  314. POTASSIUM CHLORIDE [Concomitant]
     Active Substance: POTASSIUM CHLORIDE
  315. POTASSIUM CHLORIDE [Concomitant]
     Active Substance: POTASSIUM CHLORIDE
  316. DOBUTAMINE HYDROCHLORIDE [Concomitant]
     Active Substance: DOBUTAMINE HYDROCHLORIDE
     Indication: Cardiogenic shock
  317. DOBUTAMINE HYDROCHLORIDE [Concomitant]
     Active Substance: DOBUTAMINE HYDROCHLORIDE
     Route: 042
  318. DOBUTAMINE HYDROCHLORIDE [Concomitant]
     Active Substance: DOBUTAMINE HYDROCHLORIDE
  319. DOBUTAMINE HYDROCHLORIDE [Concomitant]
     Active Substance: DOBUTAMINE HYDROCHLORIDE
  320. DOBUTAMINE HYDROCHLORIDE [Concomitant]
     Active Substance: DOBUTAMINE HYDROCHLORIDE
  321. DOBUTAMINE HYDROCHLORIDE [Concomitant]
     Active Substance: DOBUTAMINE HYDROCHLORIDE
  322. DOBUTAMINE HYDROCHLORIDE [Concomitant]
     Active Substance: DOBUTAMINE HYDROCHLORIDE
  323. HYDROMORPHONE [Concomitant]
     Active Substance: HYDROMORPHONE
     Indication: Analgesic therapy
     Route: 058
  324. HYDROMORPHONE [Concomitant]
     Active Substance: HYDROMORPHONE
     Route: 058
  325. HYDROMORPHONE [Concomitant]
     Active Substance: HYDROMORPHONE
     Route: 058
  326. MACROGOL3350/POTASSIUMCHLORIDE/SODIUMASCORBATE/SODIUMCHLORIDE/SODIUMSU [Concomitant]
     Indication: Constipation
  327. POTASSIUM CHLORATE [Concomitant]
     Active Substance: POTASSIUM CHLORATE
     Indication: Product used for unknown indication
  328. DISODIUM HYDROGEN CITRATE [Concomitant]
     Active Substance: DISODIUM HYDROGEN CITRATE
     Indication: Thrombosis
  329. UMECLIDINIUMBROMIDE/VILANTEROLTRIFENATATE [Concomitant]
     Indication: Product used for unknown indication
  330. UMECLIDINIUMBROMIDE/VILANTEROLTRIFENATATE [Concomitant]
     Indication: Dyspnoea
     Route: 048
  331. UMECLIDINIUMBROMIDE/VILANTEROLTRIFENATATE [Concomitant]
     Route: 048
  332. SIMVASTATIN [Concomitant]
     Active Substance: SIMVASTATIN
     Indication: Product used for unknown indication

REACTIONS (17)
  - Abdominal distension [Fatal]
  - Abdominal pain [Fatal]
  - Appendicitis [Fatal]
  - Appendicolith [Fatal]
  - Ascites [Fatal]
  - Cardiogenic shock [Fatal]
  - Constipation [Fatal]
  - General physical health deterioration [Fatal]
  - Hyponatraemia [Fatal]
  - Multiple organ dysfunction syndrome [Fatal]
  - Nausea [Fatal]
  - Sepsis [Fatal]
  - Stress [Fatal]
  - Vomiting [Fatal]
  - Ventricular fibrillation [Fatal]
  - Off label use [Fatal]
  - Blood phosphorus increased [Fatal]
